FAERS Safety Report 6599989-4 (Version None)
Quarter: 2010Q1

REPORT INFORMATION
  Report Type: 
  Country: None (occurrence: None)
  Receive Date: 20100217
  Receipt Date: 20100128
  Transmission Date: 20100710
  Serious: Yes (Other)
  Sender: FDA-Public Use
  Company Number: 1000011623

PATIENT
  Sex: Male

DRUGS (2)
  1. NEBIVOLOL HCL [Suspect]
     Indication: CARDIAC FAILURE CHRONIC
     Dosage: 2.5 MG (2.5 MG, 1 IN 1 D)
     Dates: start: 20100101
  2. NEBIVOLOL HCL [Suspect]
     Indication: CARDIAC FAILURE CHRONIC
     Dosage: 1.25 MG (1.25 MG, 1 IN 1 D)
     Dates: start: 20100101, end: 20100101

REACTIONS (1)
  - LOSS OF CONSCIOUSNESS [None]
